FAERS Safety Report 15029272 (Version 2)
Quarter: 2018Q4

REPORT INFORMATION
  Report Type: Report from Study
  Country: CA (occurrence: CA)
  Receive Date: 20180619
  Receipt Date: 20181227
  Transmission Date: 20190204
  Serious: Yes (Other)
  Sender: FDA-Public Use
  Company Number: CA-SA-2018SA040546

PATIENT
  Age: 54 Year
  Sex: Male

DRUGS (19)
  1. ERGOCALCIFEROL. [Concomitant]
     Active Substance: ERGOCALCIFEROL
     Dosage: UNK UNK,QD
     Route: 048
  2. PARACETAMOL [Concomitant]
     Active Substance: ACETAMINOPHEN
     Indication: PREMEDICATION
     Dosage: 975 MG,UNK
     Route: 048
     Dates: start: 20180205, end: 20180209
  3. CURCUMA LONGA [Concomitant]
     Active Substance: HERBALS\TURMERIC
     Dosage: UNK UNK,QD
     Route: 048
  4. ACICLOVIR [Concomitant]
     Active Substance: ACYCLOVIR
     Indication: PREMEDICATION
     Dosage: 200 MG,BID
     Route: 048
     Dates: start: 20180205
  5. OXYBUTYNIN. [Concomitant]
     Active Substance: OXYBUTYNIN CHLORIDE
     Dosage: UNK UNK,QD
     Route: 048
  6. VITAMIN B [Concomitant]
     Active Substance: VITAMIN B
     Dosage: UNK UNK,QD
     Route: 048
  7. ASCORBIC ACID. [Concomitant]
     Active Substance: ASCORBIC ACID
     Dosage: UNK UNK,QD
     Route: 048
  8. METHYLPREDNISOLONE. [Concomitant]
     Active Substance: METHYLPREDNISOLONE
     Indication: PREMEDICATION
     Dosage: 1 G,UNK
     Route: 042
     Dates: start: 20180205, end: 20180207
  9. REACTINE [CETIRIZINE HYDROCHLORIDE] [Concomitant]
     Active Substance: CETIRIZINE HYDROCHLORIDE
     Indication: PREMEDICATION
     Dosage: 10 MG,UNK
     Route: 048
     Dates: start: 20180205, end: 20180209
  10. ALEMTUZUMAB [Suspect]
     Active Substance: ALEMTUZUMAB
     Indication: RELAPSING-REMITTING MULTIPLE SCLEROSIS
     Dosage: 12 MG,QD
     Route: 041
     Dates: start: 20180205, end: 20180209
  11. VENTOLIN [Suspect]
     Active Substance: ALBUTEROL SULFATE
     Indication: CHEST DISCOMFORT
     Dosage: 2 DF, PRN
     Route: 055
     Dates: start: 20180205
  12. GRAVOL [Concomitant]
     Active Substance: DIMENHYDRINATE
     Indication: PREMEDICATION
     Dosage: 50 MG,UNK
     Route: 048
     Dates: start: 20180205, end: 20180209
  13. RANITIDINE. [Concomitant]
     Active Substance: RANITIDINE
     Indication: PREMEDICATION
     Dosage: 150 MG,UNK
     Route: 048
     Dates: start: 20180205, end: 20180209
  14. BACLOFEN. [Concomitant]
     Active Substance: BACLOFEN
     Dosage: UNK UNK,QD
     Route: 048
  15. IRON [Concomitant]
     Active Substance: IRON
     Dosage: UNK UNK,QD
     Route: 048
  16. CALCIUM [Concomitant]
     Active Substance: CALCIUM
     Dosage: UNK UNK,QD
     Route: 048
  17. BENADRYL [Concomitant]
     Active Substance: DIPHENHYDRAMINE HYDROCHLORIDE
     Indication: PREMEDICATION
     Dosage: 25 MG,PRN
     Route: 048
     Dates: start: 20170205
  18. FAMPYRA [Concomitant]
     Active Substance: DALFAMPRIDINE
     Dosage: UNK UNK,QD
     Route: 048
  19. TOCOPHEROL [Concomitant]
     Active Substance: TOCOPHEROL
     Dosage: UNK UNK,QD
     Route: 048

REACTIONS (18)
  - Scratch [Recovered/Resolved]
  - Abdominal discomfort [Recovering/Resolving]
  - Inflammation [Not Recovered/Not Resolved]
  - Peripheral coldness [Recovered/Resolved]
  - Chest discomfort [Recovered/Resolved]
  - Palpitations [Recovered/Resolved]
  - Infusion site extravasation [Recovered/Resolved]
  - Asthenia [Recovered/Resolved]
  - Arthralgia [Not Recovered/Not Resolved]
  - Tachycardia [Recovered/Resolved]
  - Abscess [Recovering/Resolving]
  - Abdominal distension [Recovered/Resolved]
  - Diarrhoea [Recovering/Resolving]
  - Haematemesis [Recovering/Resolving]
  - Insomnia [Recovered/Resolved]
  - Fatigue [Recovered/Resolved]
  - Rash [Recovered/Resolved]
  - Flushing [Recovered/Resolved]

NARRATIVE: CASE EVENT DATE: 2018
